FAERS Safety Report 16716698 (Version 2)
Quarter: 2019Q3

REPORT INFORMATION
  Report Type: Report from Study
  Country: MY (occurrence: MY)
  Receive Date: 20190819
  Receipt Date: 20190913
  Transmission Date: 20191005
  Serious: Yes (Death, Hospitalization, Other)
  Sender: FDA-Public Use
  Company Number: PHHY2019MY120383

PATIENT
  Sex: Female

DRUGS (3)
  1. VOTRIENT [Suspect]
     Active Substance: PAZOPANIB HYDROCHLORIDE
     Dosage: 600 MG, QD
     Route: 048
     Dates: start: 201902
  2. VOTRIENT [Suspect]
     Active Substance: PAZOPANIB HYDROCHLORIDE
     Indication: RENAL CELL CARCINOMA
     Dosage: 400 MG, QD
     Route: 048
     Dates: start: 201810
  3. VOTRIENT [Suspect]
     Active Substance: PAZOPANIB HYDROCHLORIDE
     Dosage: 800 MG, UNK
     Route: 048

REACTIONS (11)
  - Arthralgia [Not Recovered/Not Resolved]
  - Dyspnoea [Unknown]
  - Skin discolouration [Unknown]
  - Malignant neoplasm progression [Unknown]
  - Dengue fever [Fatal]
  - Vomiting [Unknown]
  - Peripheral swelling [Unknown]
  - Cough [Not Recovered/Not Resolved]
  - Nausea [Unknown]
  - Renal cell carcinoma [Unknown]
  - Hair colour changes [Unknown]
